FAERS Safety Report 6900127-6 (Version None)
Quarter: 2010Q3

REPORT INFORMATION
  Report Type: 
  Country: None (occurrence: None)
  Receive Date: 20100803
  Receipt Date: 20100721
  Transmission Date: 20110219
  Serious: Yes (Life-Threatening, Other)
  Sender: FDA-Public Use
  Company Number: CA-ELI_LILLY_AND_COMPANY-CA201004002721

PATIENT
  Age: 71 Year
  Sex: Male
  Weight: 70.1 kg

DRUGS (14)
  1. CYMBALTA [Suspect]
     Indication: DEPRESSION
     Dosage: 60 MG, DAILY (1/D)
  2. CYMBALTA [Suspect]
     Dosage: 120 MG, DAILY (1/D)
  3. CYMBALTA [Suspect]
     Dosage: 30 MG, DAILY (1/D)
  4. ALFUZOSIN HCL [Concomitant]
     Dosage: 10 MG, DAILY (1/D)
     Route: 048
  5. LACTULOSE [Concomitant]
  6. MULTI-VITAMIN [Concomitant]
  7. CRESTOR [Concomitant]
     Dosage: 10 MG, DAILY (1/D)
     Route: 048
  8. SENOKOT [Concomitant]
  9. AGGRENOX [Concomitant]
     Dosage: 1 D/F, 2/D
  10. LAMICTAL [Concomitant]
     Dosage: 150 MG, 2/D
     Route: 048
  11. WELLBUTRIN [Concomitant]
     Dosage: 150 MG, DAILY (1/D)
     Route: 048
  12. ZYPREXA [Concomitant]
     Dosage: 2.5 MG, 2/D
  13. ZYPREXA [Concomitant]
     Dosage: 5 MG, 2/D
  14. HALDOL [Concomitant]
     Dosage: 5 MG, 2/D
     Route: 048

REACTIONS (4)
  - AGITATION [None]
  - DELIRIUM [None]
  - RENAL FAILURE [None]
  - SUICIDAL BEHAVIOUR [None]
